FAERS Safety Report 8569752-3 (Version None)
Quarter: 2012Q3

REPORT INFORMATION
  Report Type: 
  Country: None (occurrence: None)
  Receive Date: 20120803
  Receipt Date: 20120328
  Transmission Date: 20120928
  Serious: No
  Sender: FDA-Public Use
  Company Number: US-ABBOTT-12P-163-0919153-00

PATIENT
  Sex: Male
  Weight: 106.69 kg

DRUGS (4)
  1. ASPIRIN [Concomitant]
     Indication: PRODUCT USED FOR UNKNOWN INDICATION
     Dosage: 20 MINUTES PRIOR TO DOSE OF NIASPAN
     Route: 048
  2. NIASPAN [Suspect]
     Indication: FAMILIAL RISK FACTOR
  3. CRESTOR [Concomitant]
     Indication: PRODUCT USED FOR UNKNOWN INDICATION
     Route: 048
  4. NIASPAN [Suspect]
     Indication: BLOOD CHOLESTEROL ABNORMAL
     Dosage: 2 AT BEDTIME
     Route: 048
     Dates: start: 20101001

REACTIONS (3)
  - ERYTHEMA [None]
  - SKIN IRRITATION [None]
  - FLUSHING [None]
